FAERS Safety Report 18787874 (Version 1)
Quarter: 2021Q1

REPORT INFORMATION
  Report Type: Spontaneous
  Country: US (occurrence: US)
  Receive Date: 20210125
  Receipt Date: 20210125
  Transmission Date: 20210419
  Serious: No
  Sender: FDA-Public Use
  Company Number: US-ROCHE-2677700

PATIENT
  Sex: Male
  Weight: 118.49 kg

DRUGS (1)
  1. RITUXAN [Suspect]
     Active Substance: RITUXIMAB
     Indication: GLOMERULONEPHRITIS MEMBRANOUS
     Dosage: 1 G GIVEN ON CYCLE DAYS 1 AND 15 ;ONGOING: YES
     Route: 042
     Dates: start: 20200224

REACTIONS (3)
  - Off label use [Unknown]
  - Intentional product use issue [Unknown]
  - No adverse event [Unknown]
